FAERS Safety Report 15918829 (Version 3)
Quarter: 2019Q1

REPORT INFORMATION
  Report Type: Spontaneous
  Country: US (occurrence: US)
  Receive Date: 20190205
  Receipt Date: 20190227
  Transmission Date: 20190417
  Serious: Yes (Death, Other)
  Sender: FDA-Public Use
  Company Number: US-UNITED THERAPEUTICS-UNT-2019-001872

PATIENT
  Age: 35 Year
  Sex: Female

DRUGS (4)
  1. VELETRI [Concomitant]
     Active Substance: EPOPROSTENOL
     Indication: RIGHT VENTRICULAR FAILURE
     Dosage: UNK
     Route: 065
     Dates: start: 201902
  2. SILDENAFIL CITRATE. [Concomitant]
     Active Substance: SILDENAFIL CITRATE
     Indication: PRODUCT USED FOR UNKNOWN INDICATION
     Route: 065
  3. LETAIRIS [Concomitant]
     Active Substance: AMBRISENTAN
     Indication: PRODUCT USED FOR UNKNOWN INDICATION
     Route: 065
  4. TYVASO [Suspect]
     Active Substance: TREPROSTINIL
     Indication: PULMONARY ARTERIAL HYPERTENSION
     Dosage: 18-54 ?G, QID
     Dates: start: 20181210, end: 201902

REACTIONS (4)
  - Right ventricular failure [Unknown]
  - Death [Fatal]
  - Therapy non-responder [Unknown]
  - Fluid overload [Unknown]

NARRATIVE: CASE EVENT DATE: 20190221
